FAERS Safety Report 15587753 (Version 3)
Quarter: 2018Q4

REPORT INFORMATION
  Report Type: Report from Study
  Country: UA (occurrence: UA)
  Receive Date: 20181105
  Receipt Date: 20181227
  Transmission Date: 20190205
  Serious: Yes (Hospitalization)
  Sender: FDA-Public Use
  Company Number: UA-BAYER-2018-199511

PATIENT
  Sex: Male
  Weight: 76 kg

DRUGS (10)
  1. BENDAMUSTINE [Suspect]
     Active Substance: BENDAMUSTINE
     Indication: NON-HODGKIN^S LYMPHOMA UNSPECIFIED HISTOLOGY INDOLENT
     Dosage: UNK
     Route: 042
     Dates: start: 20181018, end: 20181019
  2. COPANLISIB. [Suspect]
     Active Substance: COPANLISIB
     Indication: NON-HODGKIN^S LYMPHOMA UNSPECIFIED HISTOLOGY INDOLENT
     Dosage: 60
     Route: 042
     Dates: start: 20181018, end: 20181018
  3. COPANLISIB. [Suspect]
     Active Substance: COPANLISIB
     Indication: NON-HODGKIN^S LYMPHOMA UNSPECIFIED HISTOLOGY INDOLENT
     Dosage: 60
     Route: 042
     Dates: start: 20181025, end: 20181025
  4. BENDAMUSTINE [Suspect]
     Active Substance: BENDAMUSTINE
     Indication: NON-HODGKIN^S LYMPHOMA UNSPECIFIED HISTOLOGY INDOLENT
     Dosage: UNK
     Route: 042
     Dates: start: 201810
  5. COPANLISIB. [Suspect]
     Active Substance: COPANLISIB
     Indication: NON-HODGKIN^S LYMPHOMA UNSPECIFIED HISTOLOGY INDOLENT
     Dosage: 30
     Route: 042
     Dates: start: 20181115, end: 20181115
  6. COPANLISIB. [Suspect]
     Active Substance: COPANLISIB
     Indication: NON-HODGKIN^S LYMPHOMA UNSPECIFIED HISTOLOGY INDOLENT
     Dosage: 30
     Dates: start: 20181129, end: 20181129
  7. COPANLISIB. [Suspect]
     Active Substance: COPANLISIB
     Indication: NON-HODGKIN^S LYMPHOMA UNSPECIFIED HISTOLOGY INDOLENT
     Dosage: 30
     Route: 042
     Dates: start: 20181122, end: 20181122
  8. COPANLISIB. [Suspect]
     Active Substance: COPANLISIB
     Indication: NON-HODGKIN^S LYMPHOMA UNSPECIFIED HISTOLOGY INDOLENT
     Dosage: 60
     Route: 042
     Dates: start: 20181101, end: 20181101
  9. RITUXIMAB. [Suspect]
     Active Substance: RITUXIMAB
     Indication: NON-HODGKIN^S LYMPHOMA UNSPECIFIED HISTOLOGY INDOLENT
     Dosage: UNK
     Route: 042
     Dates: start: 20181018, end: 20181018
  10. RITUXIMAB. [Suspect]
     Active Substance: RITUXIMAB
     Indication: NON-HODGKIN^S LYMPHOMA UNSPECIFIED HISTOLOGY INDOLENT
     Dosage: UNK
     Route: 042
     Dates: start: 201810

REACTIONS (1)
  - Toxic encephalopathy [Recovered/Resolved]

NARRATIVE: CASE EVENT DATE: 20181024
